FAERS Safety Report 10346881 (Version 1)
Quarter: 2014Q3

REPORT INFORMATION
  Report Type: Spontaneous
  Country: None (occurrence: US)
  Receive Date: 20140729
  Receipt Date: 20140729
  Transmission Date: 20150326
  Serious: No
  Sender: FDA-Public Use
  Company Number: US-TEVA-497683USA

PATIENT
  Sex: Male

DRUGS (1)
  1. QNASL [Suspect]
     Active Substance: BECLOMETHASONE DIPROPIONATE
     Route: 045

REACTIONS (4)
  - Nasal septum perforation [Unknown]
  - Scab [Unknown]
  - Burning sensation [Unknown]
  - Nasal disorder [Unknown]
